FAERS Safety Report 5071737-9 (Version None)
Quarter: 2006Q3

REPORT INFORMATION
  Report Type: 
  Country: None (occurrence: None)
  Receive Date: 20060801
  Receipt Date: 20060719
  Transmission Date: 20061208
  Serious: Yes (Other)
  Sender: FDA-Public Use
  Company Number: JP200607003644

PATIENT
  Sex: Male

DRUGS (3)
  1. HUMACART REGULAR(HUMAN INSULIN (RDNA ORIGIN) REGULAR) PEN,DISPOSABLE [Suspect]
  2. HUMACART NPH (HUMAN INSULIN (RDNA ORIGIN) NP [Suspect]
  3. HUMULIN R PEN (HUMULIN R PEN) [Concomitant]

REACTIONS (1)
  - LIVER DISORDER [None]
